FAERS Safety Report 14010579 (Version 1)
Quarter: 2017Q3

REPORT INFORMATION
  Report Type: Spontaneous
  Country: FR (occurrence: FR)
  Receive Date: 20170926
  Receipt Date: 20170926
  Transmission Date: 20171128
  Serious: Yes (Other)
  Sender: FDA-Public Use
  Company Number: FR-MERCK KGAA-2027649

PATIENT
  Sex: Female

DRUGS (1)
  1. NOVOTHYROX [Suspect]
     Active Substance: LEVOTHYROXINE SODIUM
     Indication: PRODUCT USED FOR UNKNOWN INDICATION
     Route: 048

REACTIONS (8)
  - Depression [Unknown]
  - Fatigue [Unknown]
  - Somnolence [Unknown]
  - Aggression [Unknown]
  - Anhedonia [Unknown]
  - Nervousness [Unknown]
  - Amnesia [Unknown]
  - Diffuse alopecia [Unknown]
